FAERS Safety Report 11689260 (Version 2)
Quarter: 2015Q4

REPORT INFORMATION
  Report Type: Spontaneous
  Country: FR (occurrence: FR)
  Receive Date: 20151102
  Receipt Date: 20151113
  Transmission Date: 20160304
  Serious: Yes (Hospitalization)
  Sender: FDA-Public Use
  Company Number: FR-009507513-1510FRA013852

PATIENT
  Age: 74 Year
  Sex: Female

DRUGS (10)
  1. VALIUM [Suspect]
     Active Substance: DIAZEPAM
     Dosage: UNK
     Route: 048
  2. BROMAZEPAM [Suspect]
     Active Substance: BROMAZEPAM
     Dosage: UNK, TAKEN IN THE EVENING
     Route: 048
  3. TRIMEBUTINE MALEATE [Suspect]
     Active Substance: TRIMEBUTINE MALEATE
  4. POTASSIUM BITARTRATE (+) SODIUM BICARBONATE [Suspect]
     Active Substance: POTASSIUM BITARTRATE\SODIUM BICARBONATE
     Route: 054
  5. NOROXINE [Suspect]
     Active Substance: NORFLOXACIN
     Dosage: 1 DF, BID
     Route: 048
  6. POLYETHYLENE GLYCOL 3350. [Suspect]
     Active Substance: POLYETHYLENE GLYCOL 3350
     Indication: PRODUCT USED FOR UNKNOWN INDICATION
     Dosage: UNK
     Route: 048
  7. PAROXETINE [Suspect]
     Active Substance: PAROXETINE\PAROXETINE HYDROCHLORIDE
     Dosage: UNK, TAKEN IN THE EVENING
     Route: 048
  8. FRAGMIN [Suspect]
     Active Substance: DALTEPARIN SODIUM
     Route: 058
  9. MEPROBAMATE. [Suspect]
     Active Substance: MEPROBAMATE
  10. HYPERIUM [Suspect]
     Active Substance: RILMENIDINE PHOSPHATE
     Dosage: UNK TAKEN IN THE MORNING
     Route: 048

REACTIONS (4)
  - Dermatitis bullous [Unknown]
  - Pruritus [Unknown]
  - Pemphigoid [Unknown]
  - Cutaneous vasculitis [Unknown]
